FAERS Safety Report 17733925 (Version 1)
Quarter: 2020Q2

REPORT INFORMATION
  Report Type: Spontaneous
  Country: US (occurrence: US)
  Receive Date: 20200501
  Receipt Date: 20200501
  Transmission Date: 20200714
  Serious: Yes (Other)
  Sender: FDA-Public Use
  Company Number: US-PRINSTON PHARMACEUTICAL INC.-2020PRN00141

PATIENT
  Sex: Male

DRUGS (11)
  1. SENNA [Concomitant]
     Active Substance: SENNA LEAF\SENNOSIDES\SENNOSIDES A AND B
  2. PAROXETINE. [Concomitant]
     Active Substance: PAROXETINE
  3. FERROUS SULFATE EXSICCATED [Concomitant]
  4. CARBIDOPA-LEVODOPA-B [Concomitant]
     Active Substance: CARBIDOPA\LEVODOPA
  5. LEVETIRACETAM. [Suspect]
     Active Substance: LEVETIRACETAM
     Indication: SEIZURE
     Dosage: 250 MG, 2X/DAY
     Route: 048
  6. CLOPIDOGREL BISULFATE. [Concomitant]
     Active Substance: CLOPIDOGREL BISULFATE
  7. NORCO [Concomitant]
     Active Substance: ACETAMINOPHEN\HYDROCODONE BITARTRATE
  8. MIDODRINE HCL [Concomitant]
     Active Substance: MIDODRINE HYDROCHLORIDE
  9. QUETIAPINE FUMARATE. [Concomitant]
     Active Substance: QUETIAPINE FUMARATE
  10. DIGOXIN. [Concomitant]
     Active Substance: DIGOXIN
  11. ATORVASTATIN CALCIUM. [Concomitant]
     Active Substance: ATORVASTATIN CALCIUM

REACTIONS (3)
  - Incorrect route of product administration [Not Recovered/Not Resolved]
  - Decreased activity [Not Recovered/Not Resolved]
  - Stent placement [Recovered/Resolved]

NARRATIVE: CASE EVENT DATE: 2017
